FAERS Safety Report 18973623 (Version 1)
Quarter: 2021Q1

REPORT INFORMATION
  Report Type: Spontaneous
  Country: US (occurrence: US)
  Receive Date: 20210305
  Receipt Date: 20210305
  Transmission Date: 20210420
  Serious: Yes (Life-Threatening, Hospitalization, Disabling)
  Sender: FDA-Public Use
  Company Number: None

PATIENT
  Age: 64 Year
  Sex: Female
  Weight: 81 kg

DRUGS (15)
  1. ALBUTEROL PRN [Concomitant]
  2. CALCIUM CHEWABLES [Concomitant]
  3. IMITREX [Concomitant]
     Active Substance: SUMATRIPTAN SUCCINATE
  4. LEVOTHYROXINE. [Concomitant]
     Active Substance: LEVOTHYROXINE
  5. FERAHEME [Suspect]
     Active Substance: FERUMOXYTOL NON-STOICHIOMETRIC MAGNETITE
     Indication: ANAEMIA
     Route: 042
     Dates: start: 20190904, end: 20190904
  6. VITAMIN B12 [Concomitant]
     Active Substance: CYANOCOBALAMIN
  7. FOLIC ACID. [Concomitant]
     Active Substance: FOLIC ACID
  8. PFIZER?BIONTECH COVID?19 VACCINE [Suspect]
     Active Substance: TOZINAMERAN
  9. AMLODIPINE [Concomitant]
     Active Substance: AMLODIPINE BESYLATE
  10. CALCIUM [Concomitant]
     Active Substance: CALCIUM
  11. VITAMIN D3 [Concomitant]
     Active Substance: CHOLECALCIFEROL
  12. MULTIVITAMINS [Concomitant]
     Active Substance: VITAMINS
  13. ALPRAZOLAM. [Concomitant]
     Active Substance: ALPRAZOLAM
  14. ADDERALL [Concomitant]
     Active Substance: AMPHETAMINE ASPARTATE\AMPHETAMINE SULFATE\DEXTROAMPHETAMINE SACCHARATE\DEXTROAMPHETAMINE SULFATE
  15. BENAZEPRIL [Concomitant]
     Active Substance: BENAZEPRIL HYDROCHLORIDE

REACTIONS (18)
  - Anaphylactic reaction [None]
  - Dyspnoea [None]
  - Nail discolouration [None]
  - Fall [None]
  - Depression [None]
  - Chest X-ray abnormal [None]
  - Infusion related hypersensitivity reaction [None]
  - Dysstasia [None]
  - Nail bed disorder [None]
  - Lethargy [None]
  - COVID-19 immunisation [None]
  - Decreased appetite [None]
  - Vaccination complication [None]
  - Dysgeusia [None]
  - Loss of consciousness [None]
  - Fatigue [None]
  - Cardio-respiratory arrest [None]
  - Lung disorder [None]

NARRATIVE: CASE EVENT DATE: 20190904
